FAERS Safety Report 12834492 (Version 1)
Quarter: 2016Q4

REPORT INFORMATION
  Report Type: Spontaneous
  Country: JP (occurrence: JP)
  Receive Date: 20161010
  Receipt Date: 20161010
  Transmission Date: 20170207
  Serious: Yes (Death, Hospitalization)
  Sender: FDA-Public Use
  Company Number: JP-PFIZER INC-2016249574

PATIENT
  Age: 83 Year
  Sex: Female
  Weight: 34 kg

DRUGS (8)
  1. GOODMIN [Concomitant]
     Active Substance: BROTIZOLAM
     Indication: INSOMNIA
     Dosage: 0.25 MG, AS NEEDED
     Route: 048
  2. GLUCOSE OTSUKA [Concomitant]
     Dosage: 250 UNK, UNK
     Route: 041
     Dates: start: 20160427
  3. SELBEX [Concomitant]
     Active Substance: TEPRENONE
     Dosage: 0.75 G, 2X/DAY
     Route: 048
  4. NEOLAMIN 3B [Concomitant]
     Dosage: 1 AMPOULE, UNK
     Route: 042
     Dates: start: 20160427
  5. LEUCOVORIN. [Concomitant]
     Active Substance: LEUCOVORIN
     Dosage: 9 MG, 3X/DAY
     Route: 042
  6. RHEUMATREX [Suspect]
     Active Substance: METHOTREXATE SODIUM
     Indication: RHEUMATOID ARTHRITIS
     Dosage: 6 MG, WEEKLY
     Route: 048
  7. NEUROTROPIN [Concomitant]
     Active Substance: NEUROTROPIN
     Indication: RHEUMATOID ARTHRITIS
     Dosage: 1 TABLET, 2X/DAY
     Route: 048
  8. REMICADE [Concomitant]
     Active Substance: INFLIXIMAB
     Indication: RHEUMATOID ARTHRITIS
     Dosage: 200 MG, UNK (EVERY 8 WEEK)
     Route: 041
     Dates: end: 20160312

REACTIONS (4)
  - Bone marrow failure [Fatal]
  - Pancytopenia [Fatal]
  - Pulmonary alveolar haemorrhage [Fatal]
  - Acute respiratory failure [Fatal]

NARRATIVE: CASE EVENT DATE: 20160430
